FAERS Safety Report 9580278 (Version 4)
Quarter: 2017Q4

REPORT INFORMATION
  Report Type: Report from Study
  Country: US (occurrence: US)
  Receive Date: 20131002
  Receipt Date: 20171106
  Transmission Date: 20180321
  Serious: Yes (Other)
  Sender: FDA-Public Use
  Company Number: US-SANOFI-AVENTIS-2013SA060846

PATIENT
  Age: 57 Year
  Sex: Female

DRUGS (3)
  1. AUBAGIO [Suspect]
     Active Substance: TERIFLUNOMIDE
     Indication: MULTIPLE SCLEROSIS
     Route: 048
     Dates: start: 20171018, end: 20171020
  2. AUBAGIO [Suspect]
     Active Substance: TERIFLUNOMIDE
     Indication: MULTIPLE SCLEROSIS
     Route: 048
     Dates: start: 201710
  3. AUBAGIO [Suspect]
     Active Substance: TERIFLUNOMIDE
     Indication: MULTIPLE SCLEROSIS
     Route: 048
     Dates: start: 201301

REACTIONS (19)
  - Balance disorder [Recovered/Resolved]
  - Feeling abnormal [Not Recovered/Not Resolved]
  - Cough [Unknown]
  - Feeling abnormal [Recovered/Resolved]
  - Dyskinesia [Recovered/Resolved]
  - Nasopharyngitis [Unknown]
  - Nasal obstruction [Unknown]
  - Asthenia [Recovered/Resolved]
  - Decreased appetite [Unknown]
  - Tremor [Not Recovered/Not Resolved]
  - Condition aggravated [Recovered/Resolved]
  - Visual impairment [Recovering/Resolving]
  - Drug dose omission [Unknown]
  - Tinnitus [Unknown]
  - Tremor [Recovered/Resolved]
  - Weight decreased [Not Recovered/Not Resolved]
  - Migraine [Not Recovered/Not Resolved]
  - Cerebrovascular accident [Unknown]
  - Dysstasia [Recovered/Resolved]

NARRATIVE: CASE EVENT DATE: 2013
